FAERS Safety Report 21022220 (Version 4)
Quarter: 2022Q3

REPORT INFORMATION
  Report Type: Report from Study
  Country: CA (occurrence: None)
  Receive Date: 20220629
  Receipt Date: 20220811
  Transmission Date: 20221027
  Serious: Yes (Hospitalization)
  Sender: FDA-Public Use
  Company Number: 2022A231226

PATIENT
  Age: 1110 Month
  Sex: Female

DRUGS (5)
  1. CALQUENCE [Interacting]
     Active Substance: ACALABRUTINIB
     Indication: Mantle cell lymphoma
     Route: 048
     Dates: start: 20220305
  2. CALQUENCE [Interacting]
     Active Substance: ACALABRUTINIB
     Indication: Mantle cell lymphoma
     Route: 048
     Dates: start: 20220305, end: 20220622
  3. RABEPRAZOLE [Interacting]
     Active Substance: RABEPRAZOLE
     Route: 065
  4. IMBRUVICA [Concomitant]
     Active Substance: IBRUTINIB
     Dosage: UNKNOWN
     Route: 065
  5. RAMIPRIL [Concomitant]
     Active Substance: RAMIPRIL
     Dosage: UNKNOWN
     Route: 065

REACTIONS (2)
  - Drug interaction [Unknown]
  - Arrhythmia [Unknown]

NARRATIVE: CASE EVENT DATE: 20220601
